FAERS Safety Report 10055630 (Version 1)
Quarter: 2014Q2

REPORT INFORMATION
  Report Type: Spontaneous
  Country: US (occurrence: None)
  Receive Date: 20140402
  Receipt Date: 20140402
  Transmission Date: 20141212
  Serious: Yes (Hospitalization)
  Sender: FDA-Public Use
  Company Number: None

PATIENT
  Age: 59 Year
  Sex: Male
  Weight: 89.5 kg

DRUGS (1)
  1. LISINOPRIL [Suspect]
     Indication: HYPERTENSION
     Route: 048
     Dates: start: 20100327, end: 20140327

REACTIONS (7)
  - Dysphonia [None]
  - Dysphagia [None]
  - Dyspnoea [None]
  - Saliva altered [None]
  - Angioedema [None]
  - Drug hypersensitivity [None]
  - Contrast media reaction [None]
